FAERS Safety Report 10217180 (Version 1)
Quarter: 2014Q2

REPORT INFORMATION
  Report Type: Spontaneous
  Country: US (occurrence: US)
  Receive Date: 20140604
  Receipt Date: 20140604
  Transmission Date: 20141212
  Serious: Yes (Hospitalization)
  Sender: FDA-Public Use
  Company Number: US-SA-2014SA068751

PATIENT
  Sex: Female

DRUGS (3)
  1. LANTUS SOLOSTAR [Suspect]
     Indication: TYPE 2 DIABETES MELLITUS
     Dosage: STARTED: APR/MAY-13 DOSE:38 UNIT(S)
     Route: 065
     Dates: start: 2013
  2. LANTUS SOLOSTAR [Suspect]
     Indication: TYPE 2 DIABETES MELLITUS
     Dosage: STARTED: APR/MAY-13 DOSE:38 UNIT(S)
     Route: 065
  3. SOLOSTAR [Concomitant]
     Dates: start: 2013

REACTIONS (2)
  - Cardiac operation [Unknown]
  - Drug dose omission [Unknown]
